FAERS Safety Report 11792797 (Version 1)
Quarter: 2015Q4

REPORT INFORMATION
  Report Type: Spontaneous
  Country: US (occurrence: None)
  Receive Date: 20151130
  Receipt Date: 20151130
  Transmission Date: 20160305
  Serious: Yes (Hospitalization)
  Sender: FDA-Public Use
  Company Number: 2015US-106284

PATIENT
  Age: 61 Year
  Sex: Male

DRUGS (3)
  1. CISPLATIN (CISPLATIN) UNKNOWN [Concomitant]
     Active Substance: CISPLATIN
  2. 5 FLUROURACIL (5 FLUROURACIL) [Concomitant]
  3. DOCETAXEL (DOCETAXEL) UNKNOWN [Suspect]
     Active Substance: DOCETAXEL
     Indication: TONSIL CANCER

REACTIONS (2)
  - Traumatic lung injury [None]
  - Acute kidney injury [None]
